FAERS Safety Report 8033719-4 (Version None)
Quarter: 2012Q1

REPORT INFORMATION
  Report Type: 
  Country: None (occurrence: None)
  Receive Date: 20120110
  Receipt Date: 20120105
  Transmission Date: 20120608
  Serious: Yes (Hospitalization, Other)
  Sender: FDA-Public Use
  Company Number: US-GLAXOSMITHKLINE-A0959816A

PATIENT
  Age: 25 Year
  Sex: Female

DRUGS (10)
  1. BUPROPION HYDROCHLORIDE [Concomitant]
  2. ALBUTEROL [Concomitant]
     Indication: ASTHMA
  3. VYVANSE [Concomitant]
  4. SINGULAIR [Concomitant]
  5. LAMOTRIGINE [Suspect]
     Indication: BIPOLAR DISORDER
     Dosage: 250MG TWICE PER DAY
     Route: 065
     Dates: start: 20110315
  6. AMBIEN [Concomitant]
  7. OMEPRAZOLE [Concomitant]
  8. FLOVENT [Concomitant]
     Indication: ASTHMA
  9. VESICARE [Concomitant]
  10. GABAPENTIN [Concomitant]
     Indication: MIGRAINE

REACTIONS (5)
  - PHOTOPSIA [None]
  - OVERDOSE [None]
  - VISUAL FIELD DEFECT [None]
  - RETINAL DISORDER [None]
  - VISUAL IMPAIRMENT [None]
